FAERS Safety Report 5444321-2 (Version None)
Quarter: 2007Q3

REPORT INFORMATION
  Report Type: 
  Country: None (occurrence: None)
  Receive Date: 20070906
  Receipt Date: 20070904
  Transmission Date: 20080115
  Serious: Yes (Other)
  Sender: FDA-Public Use
  Company Number: US-BRISTOL-MYERS SQUIBB COMPANY-13896766

PATIENT

DRUGS (3)
  1. DIDANOSINE [Suspect]
     Indication: HIV INFECTION
  2. AMPRENAVIR [Suspect]
  3. TENOFOVIR DISOPROXIL FUMARATE [Suspect]

REACTIONS (1)
  - RENAL IMPAIRMENT [None]
